FAERS Safety Report 11129761 (Version 2)
Quarter: 2015Q2

REPORT INFORMATION
  Report Type: Report from Study
  Country: CA (occurrence: CA)
  Receive Date: 20150521
  Receipt Date: 20150602
  Transmission Date: 20150821
  Serious: Yes (Hospitalization)
  Sender: FDA-Public Use
  Company Number: CA-ABBVIE-15K-028-1393141-00

PATIENT
  Age: 52 Year
  Sex: Female

DRUGS (1)
  1. HUMIRA [Suspect]
     Active Substance: ADALIMUMAB
     Indication: CROHN^S DISEASE
     Route: 058
     Dates: start: 20150311

REACTIONS (3)
  - Injection site reaction [Not Recovered/Not Resolved]
  - Pleurisy [Recovering/Resolving]
  - Injection site rash [Recovered/Resolved]

NARRATIVE: CASE EVENT DATE: 201503
